FAERS Safety Report 6357617-7 (Version None)
Quarter: 2009Q3

REPORT INFORMATION
  Report Type: 
  Country: None (occurrence: None)
  Receive Date: 20090916
  Receipt Date: 20090914
  Transmission Date: 20100115
  Serious: Yes (Death, Other)
  Sender: FDA-Public Use
  Company Number: PHHY2009GB26244

PATIENT
  Age: 63 Year
  Sex: Female

DRUGS (5)
  1. CARBAMAZEPINE [Suspect]
     Indication: EPILEPSY
     Dosage: UNK
     Route: 048
  2. CARBAMAZEPINE [Suspect]
     Dosage: UNK
     Route: 048
  3. VIMPAT [Suspect]
     Dosage: 100 MG
     Dates: start: 20090312
  4. KEPPRA [Suspect]
     Indication: EPILEPSY
     Dosage: 250MG
     Route: 048
  5. TOPIRAMATE [Suspect]
     Indication: EPILEPSY
     Dosage: 200 MG
     Route: 048

REACTIONS (3)
  - CHRONIC OBSTRUCTIVE PULMONARY DISEASE [None]
  - CONDITION AGGRAVATED [None]
  - HYPONATRAEMIA [None]
